FAERS Safety Report 4717728-6 (Version None)
Quarter: 2005Q3

REPORT INFORMATION
  Report Type: 
  Country: None (occurrence: None)
  Receive Date: 20050713
  Receipt Date: 20050422
  Transmission Date: 20060218
  Serious: Yes (Other)
  Sender: FDA-Public Use
  Company Number: HQWYE456929APR05

PATIENT
  Sex: Female

DRUGS (1)
  1. ALAVERT [Suspect]
     Dosage: UNKNOWN, ORAL
     Route: 048
     Dates: start: 20050418, end: 20050420

REACTIONS (2)
  - HYPERHIDROSIS [None]
  - NASAL CONGESTION [None]
